FAERS Safety Report 19475531 (Version 1)
Quarter: 2021Q2

REPORT INFORMATION
  Report Type: Spontaneous
  Country: CN (occurrence: CN)
  Receive Date: 20210629
  Receipt Date: 20210629
  Transmission Date: 20210717
  Serious: Yes (Hospitalization, Disabling)
  Sender: FDA-Public Use
  Company Number: CN-BAXTER-2021BAX017945

PATIENT
  Age: 40 Year
  Sex: Female
  Weight: 61 kg

DRUGS (5)
  1. ENDOXAN [Suspect]
     Active Substance: CYCLOPHOSPHAMIDE
     Indication: SYSTEMIC LUPUS ERYTHEMATOSUS
     Dosage: DOSE RE?INTRODUCED, CYCLOPHOSPHAMIDE 200 MG + 0.9% SODIUM CHLORIDE INJECTION 250ML
     Route: 041
     Dates: start: 20210111, end: 20210112
  2. SODIUM CHLORIDE. [Suspect]
     Active Substance: SODIUM CHLORIDE
     Indication: MEDICATION DILUTION
     Dosage: CYCLOPHOSPHAMIDE 600 MG + 0.9% SODIUM CHLORIDE INJECTION 250ML
     Route: 041
     Dates: start: 20210108, end: 20210108
  3. SODIUM CHLORIDE. [Suspect]
     Active Substance: SODIUM CHLORIDE
     Dosage: DOSE RE?INTRODUCED, CYCLOPHOSPHAMIDE 200 MG + 0.9% SODIUM CHLORIDE INJECTION 250ML
     Route: 041
     Dates: start: 20210111, end: 20210112
  4. YOUJIALE [Suspect]
     Active Substance: LEVOTHYROXINE SODIUM
     Indication: SECONDARY HYPOTHYROIDISM
     Dosage: TABLET
     Route: 048
     Dates: start: 20210109, end: 20210115
  5. ENDOXAN [Suspect]
     Active Substance: CYCLOPHOSPHAMIDE
     Indication: LUPUS NEPHRITIS
     Dosage: CYCLOPHOSPHAMIDE 600 MG + 0.9% SODIUM CHLORIDE INJECTION 250ML
     Route: 041
     Dates: start: 20210108, end: 20210108

REACTIONS (4)
  - Nausea [Recovered/Resolved]
  - Oedema [Recovering/Resolving]
  - Abdominal distension [Recovered/Resolved]
  - Vomiting [Recovered/Resolved]

NARRATIVE: CASE EVENT DATE: 20210109
